FAERS Safety Report 19241212 (Version 3)
Quarter: 2021Q2

REPORT INFORMATION
  Report Type: Report from Study
  Country: AR (occurrence: AR)
  Receive Date: 20210510
  Receipt Date: 20210524
  Transmission Date: 20210717
  Serious: Yes (Other)
  Sender: FDA-Public Use
  Company Number: AR-TAKEDA-2021TUS028722

PATIENT
  Age: 71 Year
  Sex: Male
  Weight: 101 kg

DRUGS (2)
  1. VELAGLUCERASE ALFA [Suspect]
     Active Substance: VELAGLUCERASE ALFA
     Dosage: 7?8 VIALS, Q2WEEKS
     Route: 042
     Dates: start: 20080612
  2. VELAGLUCERASE ALFA [Suspect]
     Active Substance: VELAGLUCERASE ALFA
     Indication: GAUCHER^S DISEASE
     Dosage: 760 INTERNATIONAL UNIT/KILOGRAM/ 400 INTERNATIONAL UNIT/7?8 VIALS
     Route: 065
     Dates: start: 20080612

REACTIONS (2)
  - COVID-19 [Recovering/Resolving]
  - Discouragement [Unknown]

NARRATIVE: CASE EVENT DATE: 20210504
